FAERS Safety Report 5268281-2 (Version None)
Quarter: 2007Q1

REPORT INFORMATION
  Report Type: 
  Country: None (occurrence: None)
  Receive Date: 20070314
  Receipt Date: 20070314
  Transmission Date: 20070707
  Serious: Yes (Death)
  Sender: FDA-Public Use
  Company Number: None

PATIENT
  Age: 65 Year
  Sex: Female
  Weight: 68.0396 kg

DRUGS (1)
  1. PROCRIT [Suspect]
     Indication: ANAEMIA
     Dosage: .5M 2 TIMES A WEEK IV
     Route: 042
     Dates: start: 20060701, end: 20070209

REACTIONS (6)
  - ASTHENIA [None]
  - CARDIAC ENZYMES INCREASED [None]
  - CARDIAC FAILURE CONGESTIVE [None]
  - CONVULSION [None]
  - NEOPLASM [None]
  - RENAL DISORDER [None]
